FAERS Safety Report 6826512-9 (Version None)
Quarter: 2010Q3

REPORT INFORMATION
  Report Type: 
  Country: None (occurrence: None)
  Receive Date: 20100709
  Receipt Date: 20100702
  Transmission Date: 20110219
  Serious: Yes (Death, Congenital Anomaly, Other)
  Sender: FDA-Public Use
  Company Number: GB-TEVA-239925ISR

PATIENT

DRUGS (2)
  1. SERTRALINE HCL [Suspect]
     Indication: DEPRESSION
     Route: 064
  2. ESCITALOPRAM [Suspect]
     Indication: DEPRESSION
     Route: 064

REACTIONS (1)
  - INTRA-UTERINE DEATH [None]
